FAERS Safety Report 4807671-6 (Version None)
Quarter: 2005Q4

REPORT INFORMATION
  Report Type: 
  Country: None (occurrence: None)
  Receive Date: 20051020
  Receipt Date: 20051007
  Transmission Date: 20060501
  Serious: Yes (Hospitalization, Other)
  Sender: FDA-Public Use
  Company Number: 2005139657

PATIENT
  Age: 74 Year
  Sex: Male
  Weight: 99.5 kg

DRUGS (7)
  1. ZITHROMAX [Suspect]
     Indication: RESPIRATORY DISORDER
     Dosage: SEE IMAGE
     Route: 048
     Dates: end: 20051001
  2. ZITHROMAX [Suspect]
     Indication: RESPIRATORY DISORDER
     Dosage: SEE IMAGE
     Route: 048
     Dates: start: 20050901
  3. ASPIRIN [Suspect]
  4. TRIAMTERENE (TRIAMPETEN) [Suspect]
  5. VERAPAMIL [Concomitant]
  6. LIPITOR [Concomitant]
  7. GLUCOSAMINE (GLUCOSAMINE) [Concomitant]

REACTIONS (10)
  - BLOOD CHLORIDE INCREASED [None]
  - BLOOD CREATININE INCREASED [None]
  - BLOOD SODIUM INCREASED [None]
  - COUGH [None]
  - DEHYDRATION [None]
  - DIARRHOEA [None]
  - NAUSEA [None]
  - PANCYTOPENIA [None]
  - UPPER RESPIRATORY TRACT CONGESTION [None]
  - VOMITING [None]
